FAERS Safety Report 9641637 (Version 1)
Quarter: 2013Q4

REPORT INFORMATION
  Report Type: Spontaneous
  Country: JP (occurrence: JP)
  Receive Date: 20131023
  Receipt Date: 20131023
  Transmission Date: 20140711
  Serious: Yes (Hospitalization)
  Sender: FDA-Public Use
  Company Number: JP-GLAXOSMITHKLINE-B0933778A

PATIENT
  Age: 30 Year
  Sex: Female

DRUGS (3)
  1. VALTREX [Suspect]
     Indication: PRODUCT USED FOR UNKNOWN INDICATION
     Dosage: 1000MG THREE TIMES PER DAY
     Route: 048
     Dates: start: 20131003
  2. GENTACIN [Concomitant]
     Route: 061
  3. KEFRAL [Concomitant]
     Route: 048

REACTIONS (1)
  - Asthenia [Unknown]
